FAERS Safety Report 5151869-7 (Version None)
Quarter: 2006Q4

REPORT INFORMATION
  Report Type: 
  Country: None (occurrence: None)
  Receive Date: 20061109
  Receipt Date: 20061027
  Transmission Date: 20070319
  Serious: Yes (Other)
  Sender: FDA-Public Use
  Company Number: 2006135469

PATIENT
  Age: 22 Year
  Sex: Female

DRUGS (9)
  1. PREDNISOLONE [Suspect]
     Indication: HEART TRANSPLANT
  2. PREDNISOLONE [Suspect]
     Indication: IMMUNOSUPPRESSION
  3. PREDNISOLONE [Suspect]
     Indication: LUNG TRANSPLANT
  4. CYCLOSPORINE [Suspect]
     Indication: HEART TRANSPLANT
  5. CYCLOSPORINE [Suspect]
     Indication: IMMUNOSUPPRESSION
  6. CYCLOSPORINE [Suspect]
     Indication: LUNG TRANSPLANT
  7. AZATHIOPRINE [Suspect]
     Indication: HEART TRANSPLANT
  8. AZATHIOPRINE [Suspect]
     Indication: IMMUNOSUPPRESSION
  9. AZATHIOPRINE [Suspect]
     Indication: LUNG TRANSPLANT

REACTIONS (10)
  - BRONCHIECTASIS [None]
  - BRONCHOALVEOLAR LAVAGE ABNORMAL [None]
  - DRUG EXPOSURE DURING PREGNANCY [None]
  - DRUG LEVEL BELOW THERAPEUTIC [None]
  - LOWER RESPIRATORY TRACT INFECTION [None]
  - LUNG DISORDER [None]
  - PREGNANCY [None]
  - RESPIRATORY DISORDER [None]
  - RESPIRATORY GAS EXCHANGE DISORDER [None]
  - STENOTROPHOMONAS INFECTION [None]
